FAERS Safety Report 10092373 (Version 1)
Quarter: 2014Q2

REPORT INFORMATION
  Report Type: Spontaneous
  Country: US (occurrence: US)
  Receive Date: 20140421
  Receipt Date: 20140421
  Transmission Date: 20141212
  Serious: No
  Sender: FDA-Public Use
  Company Number: US-SANOFI-AVENTIS-2013SA038936

PATIENT
  Age: 17 Year
  Sex: Female
  Weight: 45.36 kg

DRUGS (2)
  1. ALLEGRA [Suspect]
     Indication: NASOPHARYNGITIS
     Route: 048
     Dates: start: 20130407, end: 20130420
  2. ALLEGRA [Suspect]
     Indication: TINNITUS
     Route: 048
     Dates: start: 20130407, end: 20130420

REACTIONS (1)
  - Drug ineffective [Unknown]
